FAERS Safety Report 8902503 (Version 1)
Quarter: 2012Q4

REPORT INFORMATION
  Report Type: 
  Country: GB (occurrence: GB)
  Receive Date: 20121112
  Receipt Date: 20121112
  Transmission Date: 20130627
  Serious: Yes (Hospitalization)
  Sender: FDA-Public Use
  Company Number: GB-ELI_LILLY_AND_COMPANY-GB201210010068

PATIENT
  Sex: Female

DRUGS (2)
  1. FORSTEO [Suspect]
     Dosage: UNK
     Dates: start: 201203, end: 20120814
  2. FORSTEO [Suspect]
     Dosage: UNK
     Dates: start: 20120910

REACTIONS (3)
  - Convulsion [Recovered/Resolved]
  - Presyncope [Recovered/Resolved]
  - Head injury [Recovered/Resolved]
